FAERS Safety Report 5745243-X (Version None)
Quarter: 2008Q2

REPORT INFORMATION
  Report Type: 
  Country: None (occurrence: None)
  Receive Date: 20080521
  Receipt Date: 20080520
  Transmission Date: 20081010
  Serious: Yes (Hospitalization)
  Sender: FDA-Public Use
  Company Number: B0521188A

PATIENT
  Age: 84 Year
  Sex: Male

DRUGS (1)
  1. ARIXTRA [Suspect]
     Indication: THROMBOSIS PROPHYLAXIS
     Dosage: 1.5MG PER DAY
     Route: 058
     Dates: start: 20080310, end: 20080315

REACTIONS (6)
  - ARTHRALGIA [None]
  - BLOOD PRESSURE DECREASED [None]
  - HAEMORRHAGE SUBCUTANEOUS [None]
  - HYPONATRAEMIA [None]
  - ILEUS [None]
  - REFLUX OESOPHAGITIS [None]
